FAERS Safety Report 15654480 (Version 1)
Quarter: 2018Q4

REPORT INFORMATION
  Report Type: Spontaneous
  Country: US (occurrence: US)
  Receive Date: 20181126
  Receipt Date: 20181126
  Transmission Date: 20190205
  Serious: Yes (Other)
  Sender: FDA-Public Use
  Company Number: US-DSJP-DSU-2017-143437

PATIENT

DRUGS (2)
  1. BENICAR HCT [Suspect]
     Active Substance: HYDROCHLOROTHIAZIDE\OLMESARTAN MEDOXOMIL
     Indication: PRODUCT USED FOR UNKNOWN INDICATION
     Dosage: 40/25MG QD
     Dates: start: 20060920, end: 20171113
  2. BENICAR HCT [Suspect]
     Active Substance: HYDROCHLOROTHIAZIDE\OLMESARTAN MEDOXOMIL
     Dosage: 40/12.5MG QD
     Dates: start: 20060920, end: 20171113

REACTIONS (8)
  - Ulcer haemorrhage [Unknown]
  - Weight decreased [Recovered/Resolved]
  - Haemorrhoids [Unknown]
  - Gastrointestinal disorder [Recovered/Resolved]
  - Gastrointestinal melanosis [Unknown]
  - Diverticulum [Unknown]
  - Large intestine polyp [Unknown]
  - Hiatus hernia [Recovering/Resolving]

NARRATIVE: CASE EVENT DATE: 20061210
